FAERS Safety Report 9358769 (Version 3)
Quarter: 2014Q1

REPORT INFORMATION
  Report Type: Other
  Country: JP (occurrence: JP)
  Receive Date: 20130620
  Receipt Date: 20140311
  Transmission Date: 20141002
  Serious: Yes (Other)
  Sender: FDA-Public Use
  Company Number: JP-BRISTOL-MYERS SQUIBB COMPANY-19019116

PATIENT
  Age: 63 Year
  Sex: Male

DRUGS (1)
  1. TAXOL [Suspect]
     Indication: GASTRIC CANCER
     Dates: start: 201112, end: 20120522

REACTIONS (1)
  - Cystoid macular oedema [Recovering/Resolving]
